FAERS Safety Report 12144311 (Version 1)
Quarter: 2016Q1

REPORT INFORMATION
  Report Type: Spontaneous
  Country: US (occurrence: None)
  Receive Date: 20160303
  Receipt Date: 20160303
  Transmission Date: 20160526
  Serious: Yes (Hospitalization, Disabling)
  Sender: FDA-Public Use
  Company Number: None

PATIENT
  Age: 66 Year
  Sex: Female
  Weight: 65.77 kg

DRUGS (8)
  1. DULOXETINE. [Concomitant]
     Active Substance: DULOXETINE
  2. ZANAFLEX [Concomitant]
     Active Substance: TIZANIDINE HYDROCHLORIDE
  3. CARVEDILOL. [Concomitant]
     Active Substance: CARVEDILOL
  4. VITAMIN D [Concomitant]
     Active Substance: CHOLECALCIFEROL
  5. TRAMADOL. [Concomitant]
     Active Substance: TRAMADOL
  6. HUMIRA [Suspect]
     Active Substance: ADALIMUMAB
     Indication: RHEUMATOID ARTHRITIS
     Dosage: INJECT 40 MG SUBQ EVERY TWO WEEKSA  GIVEN INTO/UNDER THE SKIN
     Route: 058
     Dates: start: 20151121, end: 20151121
  7. TYLENOL [Concomitant]
     Active Substance: ACETAMINOPHEN
  8. TRIAMTERENE AND HYDROCHLOROTHIAZIDE [Concomitant]
     Active Substance: HYDROCHLOROTHIAZIDE\TRIAMTERENE

REACTIONS (2)
  - Balance disorder [None]
  - Impaired work ability [None]

NARRATIVE: CASE EVENT DATE: 20151121
